FAERS Safety Report 12445834 (Version 1)
Quarter: 2016Q2

REPORT INFORMATION
  Report Type: Spontaneous
  Country: US (occurrence: US)
  Receive Date: 20160608
  Receipt Date: 20160608
  Transmission Date: 20160815
  Serious: No
  Sender: FDA-Public Use
  Company Number: US-JNJFOC-20160510636

PATIENT
  Age: 61 Year
  Sex: Male
  Weight: 63.5 kg

DRUGS (4)
  1. TYLENOL REGULAR STRENGTH [Suspect]
     Active Substance: ACETAMINOPHEN
     Indication: ARTHROPATHY
     Dosage: 3 CAPLET, INTERVAL-ONCE
     Route: 048
     Dates: start: 20160505, end: 20160506
  2. CLONIDINE. [Concomitant]
     Active Substance: CLONIDINE
     Indication: HYPERTENSION
     Dosage: INTERVAL: 1996
     Route: 065
  3. DOXAZOSIN [Concomitant]
     Active Substance: DOXAZOSIN\DOXAZOSIN MESYLATE
     Indication: MICTURITION DISORDER
     Dosage: DOSAGE-1 1/2 DAY, INTERVAL-3 YEARS
     Route: 065
  4. LIALDA [Concomitant]
     Active Substance: MESALAMINE
     Indication: COLITIS
     Dosage: DOSAGE-1 DAY, INTERVAL- 1 1/2 YEARS
     Route: 065

REACTIONS (2)
  - Epistaxis [Recovered/Resolved]
  - Incorrect dose administered [Recovered/Resolved]

NARRATIVE: CASE EVENT DATE: 20160505
